FAERS Safety Report 24553261 (Version 2)
Quarter: 2025Q3

REPORT INFORMATION
  Report Type: Report from Study
  Country: US (occurrence: US)
  Receive Date: 20241028
  Receipt Date: 20250803
  Transmission Date: 20251021
  Serious: Yes (Other)
  Sender: ALEXION PHARMACEUTICALS
  Company Number: US-AstraZeneca-CH-00728772A

PATIENT
  Sex: Female

DRUGS (1)
  1. CALQUENCE [Suspect]
     Active Substance: ACALABRUTINIB
     Indication: Chronic lymphocytic leukaemia
     Dates: start: 20240904

REACTIONS (9)
  - Fluid retention [Unknown]
  - Bone disorder [Unknown]
  - Colitis [Unknown]
  - Hypermetabolism [Unknown]
  - Fatigue [Unknown]
  - Somnolence [Unknown]
  - Ill-defined disorder [Unknown]
  - Autoimmune disorder [Unknown]
  - Constipation [Unknown]
